FAERS Safety Report 19792492 (Version 1)
Quarter: 2021Q3

REPORT INFORMATION
  Report Type: Spontaneous
  Country: ES (occurrence: ES)
  Receive Date: 20210906
  Receipt Date: 20210906
  Transmission Date: 20211014
  Serious: Yes (Hospitalization, Other)
  Sender: FDA-Public Use
  Company Number: ES-AUROBINDO-AUR-APL-2021-037713

PATIENT
  Age: 46 Year
  Sex: Male

DRUGS (2)
  1. USTEKINUMAB [Suspect]
     Active Substance: USTEKINUMAB
     Indication: CROHN^S DISEASE
     Dosage: UNK
     Route: 030
     Dates: start: 20200801, end: 20210412
  2. CIPROFLOXACIN. [Suspect]
     Active Substance: CIPROFLOXACIN
     Indication: GASTROENTERITIS
     Dosage: UNK
     Route: 048
     Dates: start: 20210408, end: 20210412

REACTIONS (1)
  - Thrombotic microangiopathy [Recovered/Resolved]

NARRATIVE: CASE EVENT DATE: 20210412
